FAERS Safety Report 10865041 (Version 1)
Quarter: 2015Q1

REPORT INFORMATION
  Report Type: Spontaneous
  Country: US (occurrence: US)
  Receive Date: 20150224
  Receipt Date: 20150224
  Transmission Date: 20150721
  Serious: No
  Sender: FDA-Public Use
  Company Number: US-MYLANLABS-2014S1006228

PATIENT
  Sex: Male
  Weight: 49.9 kg

DRUGS (3)
  1. AMNESTEEM [Suspect]
     Active Substance: ISOTRETINOIN
     Indication: ACNE
     Dosage: 20 MG,QD
     Route: 048
     Dates: start: 20140102
  2. CONCERTA [Concomitant]
     Active Substance: METHYLPHENIDATE HYDROCHLORIDE
     Dosage: 36 MG,QD
     Route: 048
  3. AMNESTEEM [Suspect]
     Active Substance: ISOTRETINOIN
     Indication: ACNE
     Dosage: 10 MG,QD
     Route: 048
     Dates: start: 20131010

REACTIONS (5)
  - Headache [Recovering/Resolving]
  - Dry mouth [Recovering/Resolving]
  - Hyperaesthesia [Recovering/Resolving]
  - Arthralgia [Not Recovered/Not Resolved]
  - Dry skin [Recovering/Resolving]

NARRATIVE: CASE EVENT DATE: 2013
